FAERS Safety Report 7144938-3 (Version None)
Quarter: 2010Q4

REPORT INFORMATION
  Report Type: 
  Country: None (occurrence: None)
  Receive Date: 20101208
  Receipt Date: 20101202
  Transmission Date: 20110411
  Serious: Yes (Death)
  Sender: FDA-Public Use
  Company Number: US-CELGENEUS-163-21880-10120379

PATIENT
  Sex: Male

DRUGS (2)
  1. REVLIMID [Suspect]
     Route: 048
     Dates: start: 20090901, end: 20090101
  2. REVLIMID [Suspect]
     Route: 048
     Dates: start: 20100801, end: 20100101

REACTIONS (1)
  - LEUKAEMIA [None]
